FAERS Safety Report 8085881-5 (Version None)
Quarter: 2012Q1

REPORT INFORMATION
  Report Type: 
  Country: None (occurrence: None)
  Receive Date: 20120128
  Receipt Date: 20110415
  Transmission Date: 20120608
  Serious: No
  Sender: FDA-Public Use
  Company Number: US-ABBOTT-11P-163-0720516-00

PATIENT
  Sex: Male
  Weight: 90.8 kg

DRUGS (5)
  1. HUMIRA [Suspect]
     Dates: start: 20110411
  2. AVODART [Concomitant]
     Indication: PROSTATOMEGALY
  3. UNKNOWN MEDICATIONS [Concomitant]
     Indication: CARDIAC DISORDER
  4. UNKNOWN MEDICATION [Concomitant]
     Indication: ARRHYTHMIA
  5. HUMIRA [Suspect]
     Indication: PSORIATIC ARTHROPATHY
     Dates: start: 20070101, end: 20110111

REACTIONS (9)
  - NAUSEA [None]
  - ABDOMINAL PAIN UPPER [None]
  - DIARRHOEA [None]
  - ARTHRALGIA [None]
  - SKIN BURNING SENSATION [None]
  - PAIN OF SKIN [None]
  - BONE PAIN [None]
  - MALAISE [None]
  - FLATULENCE [None]
